FAERS Safety Report 23941418 (Version 1)
Quarter: 2024Q2

REPORT INFORMATION
  Report Type: Spontaneous
  Country: CN (occurrence: CN)
  Receive Date: 20240605
  Receipt Date: 20240605
  Transmission Date: 20240715
  Serious: Yes (Other)
  Sender: FDA-Public Use
  Company Number: CN-AUROBINDO-AUR-APL-2024-026858

PATIENT
  Age: 75 Year
  Sex: Male

DRUGS (9)
  1. LEVETIRACETAM [Suspect]
     Active Substance: LEVETIRACETAM
     Indication: Epilepsy
     Dosage: 0.5 GRAM, TWO TIMES A DAY
     Route: 065
     Dates: start: 20240418, end: 20240520
  2. CEFOPERAZONE SODIUM [Concomitant]
     Active Substance: CEFOPERAZONE SODIUM
     Indication: Infection
     Dosage: 3 GRAM, 3 TIMES A DAY
     Route: 042
     Dates: start: 20240418
  3. CITICOLINE SODIUM [Concomitant]
     Active Substance: CITICOLINE SODIUM
     Indication: Craniocerebral injury
     Dosage: 0.2 GRAM, 3 TIMES A DAY
     Route: 042
     Dates: start: 20240418
  4. CYTIDINE [Suspect]
     Active Substance: CYTIDINE
     Indication: Product used for unknown indication
     Dosage: 0.2 GRAM, 3 TIMES A DAY
     Route: 045
  5. NIMODIPINE [Concomitant]
     Active Substance: NIMODIPINE
     Indication: Cerebellar ataxia
     Dosage: 40 MILLIGRAM, 3 TIMES A DAY
     Route: 045
     Dates: start: 20240418
  6. SODIUM CHLORIDE [Concomitant]
     Active Substance: SODIUM CHLORIDE
     Indication: Menstrual disorder
     Dosage: 100 MILLILITER, TWO TIMES A DAY
     Route: 042
     Dates: start: 20240418, end: 20240422
  7. SODIUM CHLORIDE [Concomitant]
     Active Substance: SODIUM CHLORIDE
     Dosage: 100 MILLILITER, TWO TIMES A DAY
     Route: 042
     Dates: start: 20240418
  8. SULBACTAM SODIUM [Concomitant]
     Active Substance: SULBACTAM SODIUM
     Indication: Infection
     Dosage: 3 GRAM, 3 TIMES A DAY
     Route: 042
     Dates: start: 20240418
  9. VALPROATE SODIUM [Concomitant]
     Active Substance: VALPROATE SODIUM
     Indication: Epilepsy
     Dosage: 0.4 GRAM, TWO TIMES A DAY
     Route: 045
     Dates: start: 20240418

REACTIONS (2)
  - Neutropenia [Recovering/Resolving]
  - Leukopenia [Recovering/Resolving]

NARRATIVE: CASE EVENT DATE: 20240520
